FAERS Safety Report 6015407-9 (Version None)
Quarter: 2008Q4

REPORT INFORMATION
  Report Type: 
  Country: None (occurrence: None)
  Receive Date: 20081222
  Receipt Date: 20081210
  Transmission Date: 20090506
  Serious: Yes (Hospitalization)
  Sender: FDA-Public Use
  Company Number: US-BIOGENIDEC-2008BI033676

PATIENT
  Sex: Female

DRUGS (1)
  1. TYSABRI [Suspect]
     Indication: MULTIPLE SCLEROSIS
     Route: 042
     Dates: start: 20071004

REACTIONS (8)
  - COLITIS [None]
  - CYST [None]
  - INFLUENZA [None]
  - INSOMNIA [None]
  - IRRITABILITY [None]
  - MALAISE [None]
  - PAIN [None]
  - RESTLESSNESS [None]
